FAERS Safety Report 19435254 (Version 1)
Quarter: 2021Q2

REPORT INFORMATION
  Report Type: Spontaneous
  Country: DE (occurrence: DE)
  Receive Date: 20210617
  Receipt Date: 20210617
  Transmission Date: 20210717
  Serious: Yes (Other)
  Sender: FDA-Public Use
  Company Number: DE-ACCORD-228122

PATIENT
  Age: 68 Year
  Sex: Male
  Weight: 90 kg

DRUGS (2)
  1. OLMESARTAN MEDOXOMIL / AMLODIPINE ACCORD [Suspect]
     Active Substance: AMLODIPINE\OLMESARTAN
     Indication: HYPERTENSION
     Dosage: ONE TABLET OF OLMESARTAN MEDOXOMIL / AMLODIPINE ACCORD 40MG / 10MG ONCE A DAY
     Route: 048
     Dates: start: 20201221, end: 20210326
  2. OLMESARTAN MEDOXOMIL / AMLODIPINE ACCORD [Suspect]
     Active Substance: AMLODIPINE\OLMESARTAN
     Indication: HYPERTENSION
     Dosage: ONE TABLET OF OLMESARTAN MEDOXOMIL / AMLODIPINE ACCORD 40MG / 10MG ONCE A DAY
     Route: 048
     Dates: start: 20201221, end: 20210326

REACTIONS (9)
  - Dizziness [Recovered/Resolved]
  - Depression [Recovered/Resolved]
  - Depressed mood [Recovered/Resolved]
  - Arrhythmia [Recovered/Resolved]
  - Blood pressure fluctuation [Recovered/Resolved]
  - Anxiety [Recovered/Resolved]
  - Headache [Recovered/Resolved]
  - Visual impairment [Recovered/Resolved]
  - Suicidal ideation [Recovered/Resolved]

NARRATIVE: CASE EVENT DATE: 20210109
